FAERS Safety Report 10161761 (Version 36)
Quarter: 2016Q2

REPORT INFORMATION
  Report Type: Report from Study
  Country: CA (occurrence: CA)
  Receive Date: 20140509
  Receipt Date: 20160613
  Transmission Date: 20160815
  Serious: Yes (Death, Life-Threatening, Hospitalization, Other)
  Sender: FDA-Public Use
  Company Number: CA-ROCHE-1127303

PATIENT
  Age: 81 Year
  Sex: Female
  Weight: 90.8 kg

DRUGS (16)
  1. ACTEMRA [Suspect]
     Active Substance: TOCILIZUMAB
     Route: 042
     Dates: start: 20150407
  2. SIMVASTATIN. [Concomitant]
     Active Substance: SIMVASTATIN
     Route: 065
  3. ACTEMRA [Suspect]
     Active Substance: TOCILIZUMAB
     Route: 042
     Dates: start: 2009
  4. ACTEMRA [Suspect]
     Active Substance: TOCILIZUMAB
     Route: 042
     Dates: start: 20150630
  5. FERROUS SULFATE. [Concomitant]
     Active Substance: FERROUS SULFATE
     Route: 065
  6. ASPIRIN. [Concomitant]
     Active Substance: ASPIRIN
     Route: 048
  7. ACTEMRA [Suspect]
     Active Substance: TOCILIZUMAB
     Indication: RHEUMATOID ARTHRITIS
     Route: 042
     Dates: start: 20110725
  8. ACTEMRA [Suspect]
     Active Substance: TOCILIZUMAB
     Route: 042
     Dates: start: 20111219
  9. METFORMIN [Concomitant]
     Active Substance: METFORMIN HYDROCHLORIDE
     Route: 065
  10. ACTEMRA [Suspect]
     Active Substance: TOCILIZUMAB
     Route: 042
     Dates: start: 20150704
  11. ACTEMRA [Suspect]
     Active Substance: TOCILIZUMAB
     Route: 042
     Dates: start: 20150310
  12. ACTEMRA [Suspect]
     Active Substance: TOCILIZUMAB
     Route: 042
     Dates: start: 20150211
  13. ACTEMRA [Suspect]
     Active Substance: TOCILIZUMAB
     Route: 042
     Dates: start: 20150505
  14. ACTEMRA [Suspect]
     Active Substance: TOCILIZUMAB
     Route: 042
     Dates: start: 20150407, end: 20160406
  15. RAMIPRIL. [Concomitant]
     Active Substance: RAMIPRIL
     Indication: HYPERTENSION
     Route: 065
  16. FOLIC ACID. [Concomitant]
     Active Substance: FOLIC ACID

REACTIONS (49)
  - Heart rate decreased [Recovered/Resolved]
  - Abdominal pain [Recovering/Resolving]
  - Blood pressure increased [Not Recovered/Not Resolved]
  - Injection site pain [Recovered/Resolved]
  - Injection site bruising [Unknown]
  - Nausea [Unknown]
  - Blood pressure increased [Recovering/Resolving]
  - Drug ineffective [Unknown]
  - Vascular pain [Unknown]
  - Anxiety [Unknown]
  - Malaise [Unknown]
  - Abdominal infection [Recovered/Resolved]
  - Myalgia [Recovering/Resolving]
  - Blood pressure diastolic decreased [Unknown]
  - Myalgia [Not Recovered/Not Resolved]
  - Influenza [Recovered/Resolved]
  - Cellulitis [Recovering/Resolving]
  - Back pain [Recovering/Resolving]
  - Dehydration [Unknown]
  - Blood iron decreased [Unknown]
  - Fatigue [Unknown]
  - Headache [Not Recovered/Not Resolved]
  - Gastritis erosive [Recovering/Resolving]
  - Glaucoma [Unknown]
  - Neck pain [Unknown]
  - Nasopharyngitis [Recovering/Resolving]
  - Limb injury [Not Recovered/Not Resolved]
  - Blood pressure systolic increased [Unknown]
  - Blood pressure systolic increased [Unknown]
  - Transient ischaemic attack [Recovered/Resolved]
  - Erythema [Recovered/Resolved]
  - Wound [Not Recovered/Not Resolved]
  - Arthritis [Unknown]
  - Muscle spasms [Recovered/Resolved]
  - Gastrointestinal disorder [Unknown]
  - Diarrhoea [Not Recovered/Not Resolved]
  - Peripheral swelling [Not Recovered/Not Resolved]
  - Abdominal pain upper [Recovered/Resolved]
  - Productive cough [Not Recovered/Not Resolved]
  - Lung neoplasm malignant [Fatal]
  - Vein disorder [Recovered/Resolved]
  - Heart rate increased [Unknown]
  - Musculoskeletal pain [Unknown]
  - Infusion related reaction [Recovering/Resolving]
  - Fall [Unknown]
  - Blood pressure systolic increased [Unknown]
  - Pain in extremity [Not Recovered/Not Resolved]
  - Tension headache [Recovered/Resolved]
  - Cough [Not Recovered/Not Resolved]

NARRATIVE: CASE EVENT DATE: 20120220
